FAERS Safety Report 4728736-3 (Version None)
Quarter: 2005Q3

REPORT INFORMATION
  Report Type: 
  Country: None (occurrence: None)
  Receive Date: 20050729
  Receipt Date: 20050531
  Transmission Date: 20060218
  Serious: Yes (Other)
  Sender: FDA-Public Use
  Company Number: US-GLAXOSMITHKLINE-A0560602A

PATIENT
  Age: 60 Year
  Sex: Female
  Weight: 81.4 kg

DRUGS (6)
  1. AUGMENTIN '125' [Suspect]
     Indication: SINUSITIS
     Dosage: 2TAB TWICE PER DAY
     Route: 048
     Dates: start: 20050429, end: 20050509
  2. M.V.I. [Concomitant]
  3. VITAMIN E [Concomitant]
  4. GLUCOSAMINE CHONDROITIN [Concomitant]
  5. CALCIUM GLUCONATE [Concomitant]
  6. FISH OIL [Concomitant]

REACTIONS (5)
  - HEPATITIS [None]
  - JAUNDICE [None]
  - LIVER FUNCTION TEST ABNORMAL [None]
  - NAUSEA [None]
  - PRURITUS [None]
